FAERS Safety Report 9176575 (Version 2)
Quarter: 2013Q2

REPORT INFORMATION
  Report Type: Spontaneous
  Country: CH (occurrence: CH)
  Receive Date: 20130321
  Receipt Date: 20130401
  Transmission Date: 20140414
  Serious: Yes (Death)
  Sender: FDA-Public Use
  Company Number: CH-JNJFOC-20130307386

PATIENT
  Sex: Male

DRUGS (7)
  1. RISPERDAL CONSTA [Suspect]
     Indication: PRODUCT USED FOR UNKNOWN INDICATION
     Route: 030
  2. RISPERDAL [Suspect]
     Indication: PRODUCT USED FOR UNKNOWN INDICATION
     Route: 048
  3. BENZODIAZEPINE NOS [Concomitant]
     Indication: PRODUCT USED FOR UNKNOWN INDICATION
     Route: 065
  4. DEPAKINE CHRONO [Concomitant]
     Dosage: 500, 3 CAPS/J
     Route: 065
  5. SOLMUCOL [Concomitant]
     Dosage: 2X/J
     Route: 065
  6. SYMBICORT [Concomitant]
     Dosage: 2X/J
     Route: 065
  7. ZURCAL [Concomitant]
     Dosage: 2 CAPS/J
     Route: 065

REACTIONS (1)
  - Cardiac arrest [Fatal]
